FAERS Safety Report 7295135-2 (Version None)
Quarter: 2011Q1

REPORT INFORMATION
  Report Type: 
  Country: None (occurrence: None)
  Receive Date: 20110203
  Receipt Date: 20110118
  Transmission Date: 20110831
  Serious: Yes (Death)
  Sender: FDA-Public Use
  Company Number: B0694882A

PATIENT
  Sex: Male

DRUGS (3)
  1. PAROXETINE HYDROCHLORIDE [Suspect]
     Dosage: / ORAL
     Route: 048
  2. OXYCODONE + PARACETAMOL (FORMULATION UNKNOWN) (OXYCODONE + ACETAMINOPH [Suspect]
     Dosage: / ORAL
     Route: 048
  3. ALPRAZOLAM [Suspect]
     Dosage: / ORAL
     Route: 048

REACTIONS (2)
  - INTENTIONAL DRUG MISUSE [None]
  - CARDIO-RESPIRATORY ARREST [None]
